FAERS Safety Report 15659070 (Version 1)
Quarter: 2018Q4

REPORT INFORMATION
  Report Type: Report from Study
  Country: US (occurrence: US)
  Receive Date: 20181127
  Receipt Date: 20181127
  Transmission Date: 20190205
  Serious: Yes (Hospitalization)
  Sender: FDA-Public Use
  Company Number: US-SAKK-2018SA317697AA

PATIENT
  Age: 58 Year
  Sex: Female

DRUGS (3)
  1. INSULIN GLULISINE [Suspect]
     Active Substance: INSULIN GLULISINE
     Indication: TYPE 2 DIABETES MELLITUS
     Dosage: 30 UNITS IN THE MORNING, 20 UNITS AT LUNCH, 30 UNITS IN THE AFTERNOON
     Route: 058
  2. VICTOZA [Concomitant]
     Active Substance: LIRAGLUTIDE
  3. ACTOPLUS MET [Concomitant]
     Active Substance: METFORMIN HYDROCHLORIDE\PIOGLITAZONE HYDROCHLORIDE

REACTIONS (4)
  - Urinary tract infection [Recovered/Resolved]
  - Blood glucose increased [Recovering/Resolving]
  - Pleural effusion [Recovered/Resolved]
  - Malaise [Recovered/Resolved]
